FAERS Safety Report 8654531 (Version 4)
Quarter: 2012Q4

REPORT INFORMATION
  Report Type: 
  Country: JP (occurrence: JP)
  Receive Date: 20120709
  Receipt Date: 20120914
  Transmission Date: 20130627
  Serious: Yes (Life-Threatening)
  Sender: FDA-Public Use
  Company Number: JP-PFIZER INC-2012163386

PATIENT
  Age: 52 Year
  Sex: Female

DRUGS (8)
  1. ADRIACIN [Suspect]
     Indication: BREAST CANCER METASTATIC
     Dosage: 87 mg, UNK
     Route: 042
     Dates: start: 20060317, end: 20100927
  2. ENDOXAN [Concomitant]
     Dosage: 870 mg, UNK
     Route: 042
     Dates: start: 20060317, end: 20100927
  3. KYTRIL [Concomitant]
     Dosage: 3 mg, 1x/day
     Route: 042
     Dates: start: 20060317, end: 20100927
  4. DECADRON [Concomitant]
     Dosage: 16 mg, 1x/day
     Route: 042
     Dates: start: 20060317, end: 20060510
  5. DEXART [Concomitant]
     Dosage: 825 mg, UNK
     Route: 042
     Dates: start: 20100630, end: 20100929
  6. EMEND [Concomitant]
     Dosage: 125 mg, UNK
     Route: 048
     Dates: start: 20100630, end: 20100927
  7. EMEND [Concomitant]
     Dosage: 80 mg, UNK
     Route: 048
     Dates: start: 20100701, end: 20100929
  8. ZOMETA [Concomitant]
     Dosage: 4 mg, cyclic, every 4 weeks
     Dates: start: 20100630

REACTIONS (1)
  - Cardiac failure [Recovering/Resolving]
